FAERS Safety Report 16211231 (Version 2)
Quarter: 2019Q2

REPORT INFORMATION
  Report Type: Spontaneous
  Country: FR (occurrence: FR)
  Receive Date: 20190418
  Receipt Date: 20190426
  Transmission Date: 20190711
  Serious: No
  Sender: FDA-Public Use
  Company Number: FR-ROCHE-2306352

PATIENT
  Sex: Female

DRUGS (1)
  1. XOLAIR [Suspect]
     Active Substance: OMALIZUMAB
     Indication: URTICARIA CHRONIC
     Route: 065
     Dates: start: 201807

REACTIONS (8)
  - Formication [Unknown]
  - Myalgia [Unknown]
  - Dizziness [Unknown]
  - Arthralgia [Unknown]
  - Peripheral swelling [Unknown]
  - Weight increased [Unknown]
  - Headache [Unknown]
  - Pruritus [Unknown]
